FAERS Safety Report 12099396 (Version 1)
Quarter: 2016Q1

REPORT INFORMATION
  Report Type: Spontaneous
  Country: US (occurrence: US)
  Receive Date: 20160222
  Receipt Date: 20160222
  Transmission Date: 20160526
  Serious: No
  Sender: FDA-Public Use
  Company Number: US-TEVA-573582USA

PATIENT

DRUGS (1)
  1. AMOXICILLIN. [Suspect]
     Active Substance: AMOXICILLIN
     Indication: TOOTH INFECTION
     Dosage: 1500 MILLIGRAM DAILY;

REACTIONS (6)
  - Vomiting [Unknown]
  - Pain [Unknown]
  - Abdominal pain upper [Unknown]
  - Ear infection [Unknown]
  - Diarrhoea [Unknown]
  - Product substitution issue [Unknown]
